FAERS Safety Report 18097444 (Version 1)
Quarter: 2020Q3

REPORT INFORMATION
  Report Type: Spontaneous
  Country: GB (occurrence: GB)
  Receive Date: 20200731
  Receipt Date: 20200731
  Transmission Date: 20201103
  Serious: Yes (Other)
  Sender: FDA-Public Use
  Company Number: NVSC2020GB213566

PATIENT
  Age: 56 Year
  Sex: Male

DRUGS (5)
  1. OSELTAMIVIR [Concomitant]
     Active Substance: OSELTAMIVIR
     Indication: PNEUMONIA
     Dosage: UNK
     Route: 065
  2. VANCOMYCIN [Concomitant]
     Active Substance: VANCOMYCIN
     Indication: PNEUMONIA
     Dosage: UNK
     Route: 065
  3. CLINDAMYCIN. [Concomitant]
     Active Substance: CLINDAMYCIN
     Indication: PNEUMONIA
     Dosage: UNK
     Route: 065
  4. MOXIFLOXACIN. [Suspect]
     Active Substance: MOXIFLOXACIN
     Indication: PNEUMONIA
     Dosage: UNK
     Route: 065
  5. RIFAMPICIN [Concomitant]
     Active Substance: RIFAMPIN
     Indication: PNEUMONIA
     Dosage: UNK
     Route: 065

REACTIONS (1)
  - Iridocyclitis [Recovering/Resolving]
